FAERS Safety Report 9704235 (Version 2)
Quarter: 2013Q4

REPORT INFORMATION
  Report Type: Spontaneous
  Country: NL (occurrence: NL)
  Receive Date: 20131122
  Receipt Date: 20131125
  Transmission Date: 20140711
  Serious: Yes (Hospitalization)
  Sender: FDA-Public Use
  Company Number: NL-009507513-1311NLD007817

PATIENT
  Age: 44 Year
  Sex: Male
  Weight: 88 kg

DRUGS (3)
  1. SIMVASTATIN [Suspect]
     Indication: MYOCARDIAL INFARCTION
     Dosage: 40 MG, QD
     Route: 048
     Dates: start: 20111201, end: 201309
  2. METOPROLOL [Concomitant]
     Dosage: 50 MG, QD
     Dates: start: 20111201
  3. ACETYLSALICYLZUUR CARDIO CF [Concomitant]
     Dosage: 80 MG, QD
     Dates: start: 20111201

REACTIONS (2)
  - Tendon rupture [Recovering/Resolving]
  - Tendon rupture [Recovering/Resolving]
